FAERS Safety Report 6960717-1 (Version None)
Quarter: 2010Q3

REPORT INFORMATION
  Report Type: 
  Country: None (occurrence: None)
  Receive Date: 20100901
  Receipt Date: 20100810
  Transmission Date: 20110219
  Serious: Yes (Hospitalization, Other)
  Sender: FDA-Public Use
  Company Number: NL-ROCHE-714410

PATIENT
  Sex: Female
  Weight: 93 kg

DRUGS (7)
  1. ROACTEMRA [Suspect]
     Indication: RHEUMATOID ARTHRITIS
     Route: 042
     Dates: start: 20100326
  2. ROACTEMRA [Suspect]
     Route: 042
     Dates: start: 20100422
  3. ROACTEMRA [Suspect]
     Route: 042
     Dates: start: 20100519
  4. ROACTEMRA [Suspect]
     Route: 042
     Dates: start: 20100619
  5. ROACTEMRA [Suspect]
     Dosage: THERAPY TEMPORARILY DISCONTINUED.
     Route: 042
  6. ANTIBIOTIC NOS [Concomitant]
  7. MOVICOLON [Concomitant]
     Route: 048

REACTIONS (2)
  - C-REACTIVE PROTEIN DECREASED [None]
  - DIVERTICULITIS [None]
